FAERS Safety Report 20938807 (Version 1)
Quarter: 2022Q2

REPORT INFORMATION
  Report Type: Spontaneous
  Country: JP (occurrence: JP)
  Receive Date: 20220609
  Receipt Date: 20220609
  Transmission Date: 20220721
  Serious: Yes (Other)
  Sender: FDA-Public Use
  Company Number: JP-SA-2016SA022543

PATIENT
  Age: 22 Year
  Sex: Female
  Weight: 50 kg

DRUGS (1)
  1. MESALAMINE [Suspect]
     Active Substance: MESALAMINE
     Indication: Colitis ulcerative
     Dosage: 2.4 GRAM, QD
     Route: 048

REACTIONS (9)
  - Lung consolidation [Recovering/Resolving]
  - C-reactive protein increased [Recovering/Resolving]
  - KL-6 increased [Recovering/Resolving]
  - Pneumonia [Recovering/Resolving]
  - White blood cell count increased [Recovering/Resolving]
  - Eosinophil count increased [Recovering/Resolving]
  - Lung opacity [Recovering/Resolving]
  - Cough [Recovering/Resolving]
  - Pyrexia [Recovering/Resolving]
